FAERS Safety Report 8012887-4 (Version None)
Quarter: 2011Q4

REPORT INFORMATION
  Report Type: 
  Country: None (occurrence: None)
  Receive Date: 20111229
  Receipt Date: 20111222
  Transmission Date: 20120403
  Serious: Yes (Hospitalization)
  Sender: FDA-Public Use
  Company Number: FR-JNJFOC-20111210111

PATIENT
  Sex: Female

DRUGS (3)
  1. NIZORAL [Suspect]
     Indication: HYPERCORTICOIDISM
     Route: 048
     Dates: start: 20111027, end: 20111108
  2. RENITEC (ENALAPRIL) [Concomitant]
     Dosage: 0-0-0.5
     Route: 065
  3. NIZORAL [Suspect]
     Route: 048
     Dates: start: 20111109, end: 20111130

REACTIONS (7)
  - NAUSEA [None]
  - OVERDOSE [None]
  - CYTOLYTIC HEPATITIS [None]
  - JAUNDICE [None]
  - DIARRHOEA [None]
  - CHOLESTASIS [None]
  - VOMITING [None]
